FAERS Safety Report 13184468 (Version 1)
Quarter: 2017Q1

REPORT INFORMATION
  Report Type: Spontaneous
  Country: CA (occurrence: CA)
  Receive Date: 20170203
  Receipt Date: 20170203
  Transmission Date: 20170428
  Serious: Yes (Other)
  Sender: FDA-Public Use
  Company Number: CA-FRESENIUS KABI-FK201700884

PATIENT
  Sex: Female

DRUGS (3)
  1. CYCLOPENTOLATE. [Suspect]
     Active Substance: CYCLOPENTOLATE
     Indication: PRODUCT USED FOR UNKNOWN INDICATION
     Route: 031
  2. CAFFEINE CITRATE (MANUFACTURER UNKNOWN ) [Suspect]
     Active Substance: CAFFEINE CITRATE
     Indication: INFANTILE APNOEA
     Route: 065
  3. PHENYLEPHRINE [Suspect]
     Active Substance: PHENYLEPHRINE\PHENYLEPHRINE HYDROCHLORIDE
     Indication: PRODUCT USED FOR UNKNOWN INDICATION
     Route: 031

REACTIONS (2)
  - Arrhythmia supraventricular [Recovered/Resolved]
  - Bradycardia [None]
